FAERS Safety Report 8709327 (Version 2)
Quarter: 2012Q4

REPORT INFORMATION
  Report Type: 
  Country: GB (occurrence: GB)
  Receive Date: 20120806
  Receipt Date: 20120830
  Transmission Date: 20130627
  Serious: Yes (Other)
  Sender: FDA-Public Use
  Company Number: GB-PFIZER INC-2012186401

PATIENT
  Sex: Female

DRUGS (1)
  1. LYRICA [Suspect]
     Indication: NEURALGIA
     Dosage: 150 mg, 1x/day
     Dates: start: 2011, end: 2012

REACTIONS (15)
  - Activities of daily living impaired [Recovering/Resolving]
  - Weight increased [Recovered/Resolved]
  - Morbid thoughts [Recovering/Resolving]
  - Abdominal discomfort [Recovering/Resolving]
  - Diarrhoea [Recovering/Resolving]
  - Hyperhidrosis [Recovering/Resolving]
  - Feeling cold [Recovering/Resolving]
  - Insomnia [Recovering/Resolving]
  - Eating disorder symptom [Recovering/Resolving]
  - Feeling abnormal [Recovering/Resolving]
  - Weight decreased [Recovering/Resolving]
  - Anxiety [Not Recovered/Not Resolved]
  - Balance disorder [Unknown]
  - Dysgraphia [Unknown]
  - Malaise [Unknown]
